FAERS Safety Report 7280644-2 (Version None)
Quarter: 2011Q1

REPORT INFORMATION
  Report Type: 
  Country: None (occurrence: None)
  Receive Date: 20110208
  Receipt Date: 20110204
  Transmission Date: 20110831
  Serious: Yes (Death, Hospitalization)
  Sender: FDA-Public Use
  Company Number: A0779239A

PATIENT
  Age: 77 Year
  Sex: Female
  Weight: 98.6 kg

DRUGS (7)
  1. PREVACID [Concomitant]
  2. AVANDIA [Suspect]
     Indication: DIABETES MELLITUS
     Dosage: 8MG PER DAY
     Route: 048
     Dates: start: 20050208, end: 20070201
  3. ALBUTEROL [Concomitant]
  4. SYNTHROID [Concomitant]
  5. KLONOPIN [Concomitant]
  6. SINGULAIR [Concomitant]
  7. LISINOPRIL [Concomitant]

REACTIONS (3)
  - DEATH [None]
  - MYOCARDIAL INFARCTION [None]
  - CARDIAC FAILURE CONGESTIVE [None]
